FAERS Safety Report 9510739 (Version 1)
Quarter: 2013Q3

REPORT INFORMATION
  Report Type: Spontaneous
  Country: US (occurrence: US)
  Receive Date: 20130910
  Receipt Date: 20130910
  Transmission Date: 20140515
  Serious: Yes (Hospitalization)
  Sender: FDA-Public Use
  Company Number: US-AMGEN-USASP2013062436

PATIENT
  Age: 0 Day
  Sex: 0

DRUGS (1)
  1. ENBREL [Suspect]
     Indication: PRODUCT USED FOR UNKNOWN INDICATION
     Dosage: 50 MG, QWK
     Route: 064
     Dates: start: 201006, end: 201212

REACTIONS (3)
  - Premature baby [Recovered/Resolved]
  - Sleep apnoea syndrome [Recovered/Resolved]
  - Low birth weight baby [Recovered/Resolved]
